FAERS Safety Report 8871876 (Version 1)
Quarter: 2012Q4

REPORT INFORMATION
  Report Type: Spontaneous
  Country: US (occurrence: None)
  Receive Date: 20121024
  Receipt Date: 20121024
  Transmission Date: 20130627
  Serious: Yes (Hospitalization, Other)
  Sender: FDA-Public Use
  Company Number: 2012MA012427

PATIENT
  Sex: Female
  Weight: 72 kg

DRUGS (1)
  1. FEVERALL [Suspect]
     Indication: SUICIDE ATTEMPT
     Route: 048

REACTIONS (9)
  - Abdominal pain [None]
  - Nausea [None]
  - Vomiting [None]
  - Abdominal pain upper [None]
  - Suicide attempt [None]
  - Aspartate aminotransferase increased [None]
  - Alanine aminotransferase increased [None]
  - Toxicity to various agents [None]
  - Incorrect dose administered [None]
